FAERS Safety Report 4599232-1 (Version None)
Quarter: 2005Q1

REPORT INFORMATION
  Report Type: 
  Country: None (occurrence: None)
  Receive Date: 20050302
  Receipt Date: 20050302
  Transmission Date: 20050727
  Serious: No
  Sender: FDA-Public Use
  Company Number: None

PATIENT
  Sex: Female

DRUGS (2)
  1. FENTANYL [Suspect]
     Indication: PAIN
     Dosage: 1 PATCH TOPICALLY CHANGE Q 72 H
     Route: 061
     Dates: start: 20050221
  2. FENTANYL [Suspect]
     Indication: PAIN
     Dosage: 1 PATCH TOPICALLY CHANGE Q 72 H
     Route: 061
     Dates: start: 20050227

REACTIONS (1)
  - PHARMACEUTICAL PRODUCT COMPLAINT [None]
